FAERS Safety Report 4938892-X (Version None)
Quarter: 2006Q1

REPORT INFORMATION
  Report Type: 
  Country: None (occurrence: None)
  Receive Date: 20060309
  Receipt Date: 20051004
  Transmission Date: 20060701
  Serious: Yes (Hospitalization, Other)
  Sender: FDA-Public Use
  Company Number: US-MERCK-0510USA03140

PATIENT
  Sex: Female
  Weight: 95 kg

DRUGS (1)
  1. VIOXX [Suspect]
     Indication: ARTHRITIS
     Route: 048

REACTIONS (22)
  - ABSCESS [None]
  - ACUTE PRERENAL FAILURE [None]
  - ANGINA UNSTABLE [None]
  - ARTERIOSCLEROSIS CORONARY ARTERY [None]
  - ASTHMA [None]
  - BRONCHITIS [None]
  - CARDIOMEGALY [None]
  - CARDIOTOXICITY [None]
  - CHEST DISCOMFORT [None]
  - CHEST PAIN [None]
  - CHRONIC OBSTRUCTIVE PULMONARY DISEASE [None]
  - CORONARY ARTERY DISEASE [None]
  - GOUTY ARTHRITIS [None]
  - HELICOBACTER GASTRITIS [None]
  - HYPERKALAEMIA [None]
  - MYOCARDIAL INFARCTION [None]
  - PNEUMONIA STAPHYLOCOCCAL [None]
  - RENAL ATROPHY [None]
  - RENAL FAILURE [None]
  - RENAL FAILURE CHRONIC [None]
  - URINARY TRACT INFECTION [None]
  - VENTRICULAR DYSFUNCTION [None]
